FAERS Safety Report 20784695 (Version 1)
Quarter: 2022Q2

REPORT INFORMATION
  Report Type: Spontaneous
  Country: US (occurrence: US)
  Receive Date: 20220504
  Receipt Date: 20220504
  Transmission Date: 20220721
  Serious: No
  Sender: FDA-Public Use
  Company Number: US-PFIZER INC-202200506703

PATIENT
  Age: 4 Year
  Sex: Female

DRUGS (1)
  1. EUCRISA [Suspect]
     Active Substance: CRISABOROLE
     Indication: Keratosis pilaris
     Dosage: 1 APPLICATION TWICE A DAY
     Route: 061

REACTIONS (2)
  - Condition aggravated [Unknown]
  - Off label use [Unknown]
